FAERS Safety Report 4792830-1 (Version None)
Quarter: 2005Q4

REPORT INFORMATION
  Report Type: 
  Country: None (occurrence: None)
  Receive Date: 20051010
  Receipt Date: 20051004
  Transmission Date: 20060501
  Serious: Yes (Life-Threatening, Hospitalization)
  Sender: FDA-Public Use
  Company Number: PHRM2005FR02637

PATIENT
  Age: 11 Year
  Sex: Male

DRUGS (3)
  1. GLEEVEC [Suspect]
     Indication: ACUTE LYMPHOCYTIC LEUKAEMIA
     Dosage: 400 MG DAILY
     Route: 048
     Dates: start: 20050927, end: 20051001
  2. CHEMOTHERAPEUTICS,OTHER [Concomitant]
     Indication: ACUTE LYMPHOCYTIC LEUKAEMIA
     Dates: start: 20050906, end: 20050926
  3. CORTICOSTEROID NOS [Concomitant]
     Indication: ACUTE LYMPHOCYTIC LEUKAEMIA
     Dates: start: 20050906, end: 20050926

REACTIONS (11)
  - ACUTE PULMONARY OEDEMA [None]
  - ANAEMIA [None]
  - CARDIOMEGALY [None]
  - HEPATOMEGALY [None]
  - INTERSTITIAL LUNG DISEASE [None]
  - MYALGIA [None]
  - PAIN [None]
  - PARAPLEGIA [None]
  - PLEURAL EFFUSION [None]
  - SCIATICA [None]
  - THROMBOCYTOPENIA [None]
